FAERS Safety Report 20443653 (Version 1)
Quarter: 2022Q1

REPORT INFORMATION
  Report Type: Spontaneous
  Country: FR (occurrence: None)
  Receive Date: 20220208
  Receipt Date: 20220208
  Transmission Date: 20220423
  Serious: Yes (Hospitalization)
  Sender: FDA-Public Use
  Company Number: None

PATIENT
  Age: 59 Year
  Sex: Female
  Weight: 49 kg

DRUGS (6)
  1. CARBOPLATIN [Suspect]
     Active Substance: CARBOPLATIN
     Indication: Bronchial carcinoma
     Route: 041
     Dates: start: 20210709, end: 20210823
  2. PEMETREXED [Suspect]
     Active Substance: PEMETREXED
     Indication: Bronchial carcinoma
     Route: 041
     Dates: start: 20210709, end: 20210823
  3. LEVOTHYROXINE SODIUM [Suspect]
     Active Substance: LEVOTHYROXINE SODIUM
     Indication: Hypothyroidism
     Dosage: LEVOTHYROX 100 MICROGRAMS SCORED TABLET
     Route: 048
  4. EZETIMIBE [Suspect]
     Active Substance: EZETIMIBE
     Indication: Dyslipidaemia
     Route: 048
     Dates: end: 20211109
  5. PEMBROLIZUMAB [Suspect]
     Active Substance: PEMBROLIZUMAB
     Indication: Bronchial carcinoma
     Route: 041
     Dates: start: 20210430, end: 20210618
  6. ASPIRIN DL-LYSINE [Suspect]
     Active Substance: ASPIRIN DL-LYSINE
     Indication: Cardiovascular event prophylaxis
     Dosage: KARDEGIC 160 MG POWDER FOR DRINKABLE SOLUTION IN SACHET
     Route: 048

REACTIONS (1)
  - Cholangitis [Not Recovered/Not Resolved]

NARRATIVE: CASE EVENT DATE: 20210801
